FAERS Safety Report 13445506 (Version 1)
Quarter: 2017Q2

REPORT INFORMATION
  Report Type: Spontaneous
  Country: ES (occurrence: ES)
  Receive Date: 20170415
  Receipt Date: 20170415
  Transmission Date: 20170830
  Serious: Yes (Hospitalization)
  Sender: FDA-Public Use
  Company Number: ES-AXELLIA-001065

PATIENT
  Age: 72 Year
  Sex: Male

DRUGS (2)
  1. MEROPENEM. [Concomitant]
     Active Substance: MEROPENEM
     Indication: PSEUDOMONAS INFECTION
  2. COLISTIN [Suspect]
     Active Substance: COLISTIN
     Indication: PSEUDOMONAS INFECTION
     Dosage: RECEIVED NEBULISED COLISTIN (DOSE:1 MIU IU T.I.D.)
     Route: 042

REACTIONS (1)
  - Drug resistance [Not Recovered/Not Resolved]
